FAERS Safety Report 15937698 (Version 2)
Quarter: 2021Q1

REPORT INFORMATION
  Report Type: Spontaneous
  Country: US (occurrence: US)
  Receive Date: 20190208
  Receipt Date: 20210226
  Transmission Date: 20210419
  Serious: No
  Sender: FDA-Public Use
  Company Number: US-ROCHE-2152461

PATIENT
  Sex: Female
  Weight: 65.83 kg

DRUGS (1)
  1. XOLAIR [Suspect]
     Active Substance: OMALIZUMAB
     Indication: ASTHMA
     Dosage: ONGOING: YES
     Route: 058
     Dates: start: 20170124

REACTIONS (1)
  - Pregnancy [Unknown]
